FAERS Safety Report 17741398 (Version 2)
Quarter: 2020Q2

REPORT INFORMATION
  Report Type: Spontaneous
  Country: US (occurrence: US)
  Receive Date: 20200504
  Receipt Date: 20200528
  Transmission Date: 20200714
  Serious: Yes (Hospitalization, Other)
  Sender: FDA-Public Use
  Company Number: US-SA-2020SA114783

PATIENT
  Age: 65 Year
  Sex: Female

DRUGS (26)
  1. ASPIRIN [ACETYLSALICYLIC ACID] [Concomitant]
     Active Substance: ASPIRIN
  2. LORAZEPAM. [Concomitant]
     Active Substance: LORAZEPAM
  3. MONTELUKAST [Concomitant]
     Active Substance: MONTELUKAST SODIUM
  4. PILOCARPINE. [Concomitant]
     Active Substance: PILOCARPINE
  5. RESTASIS [Concomitant]
     Active Substance: CYCLOSPORINE
  6. VERAPAMIL [Concomitant]
     Active Substance: VERAPAMIL HYDROCHLORIDE
  7. VITAMIN B-6 [Concomitant]
     Active Substance: PYRIDOXINE
  8. DUPIXENT [Suspect]
     Active Substance: DUPILUMAB
     Indication: ECZEMA
  9. CYMBALTA [Concomitant]
     Active Substance: DULOXETINE HYDROCHLORIDE
  10. MAGNESIUM [Concomitant]
     Active Substance: MAGNESIUM
  11. DUPIXENT [Suspect]
     Active Substance: DUPILUMAB
     Indication: MIGRAINE WITHOUT AURA
     Dosage: 300 MG, QOW
     Route: 058
     Dates: start: 20200325
  12. OXYBUTYNIN. [Concomitant]
     Active Substance: OXYBUTYNIN CHLORIDE
  13. CRESTOR [Concomitant]
     Active Substance: ROSUVASTATIN CALCIUM
  14. PLAQUENIL [Concomitant]
     Active Substance: HYDROXYCHLOROQUINE SULFATE
  15. SPIRONOLACTON [Concomitant]
     Active Substance: SPIRONOLACTONE
  16. NEXIUM I.V. [Concomitant]
     Active Substance: ESOMEPRAZOLE SODIUM
  17. SYMBICORT [Concomitant]
     Active Substance: BUDESONIDE\FORMOTEROL FUMARATE DIHYDRATE
  18. POTASSIUM [Concomitant]
     Active Substance: POTASSIUM
  19. VITAMIN B12 [Concomitant]
     Active Substance: CYANOCOBALAMIN
  20. DEPLIN [Concomitant]
     Active Substance: LEVOMEFOLATE CALCIUM
  21. HYDROCHLOROTH [Concomitant]
     Active Substance: HYDROCHLOROTHIAZIDE
  22. PROBIOTIC [BIFIDOBACTERIUM LACTIS] [Concomitant]
     Active Substance: BIFIDOBACTERIUM ANIMALIS LACTIS
  23. TEMAZEPAM. [Concomitant]
     Active Substance: TEMAZEPAM
  24. CALCIUM [Concomitant]
     Active Substance: CALCIUM
  25. PRIMROSE OIL [Concomitant]
  26. PROLIA [Concomitant]
     Active Substance: DENOSUMAB

REACTIONS (5)
  - Fall [Not Recovered/Not Resolved]
  - Traumatic fracture [Not Recovered/Not Resolved]
  - Femur fracture [Not Recovered/Not Resolved]
  - Product use in unapproved indication [Unknown]
  - Pneumothorax [Not Recovered/Not Resolved]

NARRATIVE: CASE EVENT DATE: 20200325
